FAERS Safety Report 4329635-1 (Version None)
Quarter: 2004Q1

REPORT INFORMATION
  Report Type: 
  Country: None (occurrence: None)
  Receive Date: 20040329
  Receipt Date: 20040216
  Transmission Date: 20041129
  Serious: No
  Sender: FDA-Public Use
  Company Number: 04P-163-0250433-00

PATIENT
  Age: 28 Year
  Sex: Female

DRUGS (6)
  1. HUMIRA [Suspect]
     Indication: RHEUMATOID ARTHRITIS
     Dosage: 40 MG, 1 IN 2 WK, SUBCUTANEOUS
     Route: 058
     Dates: start: 20040130, end: 20040217
  2. METHOTREXATE [Concomitant]
  3. HYDROXYCHLOROQUINE PHOSPHATE [Concomitant]
  4. DAILY VITAMINS [Concomitant]
  5. CAMOMILE TEA [Concomitant]
  6. GREEN TEA [Concomitant]

REACTIONS (4)
  - ANOREXIA [None]
  - NERVOUSNESS [None]
  - PARAESTHESIA [None]
  - VISUAL ACUITY REDUCED [None]
